FAERS Safety Report 25173326 (Version 2)
Quarter: 2025Q3

REPORT INFORMATION
  Report Type: Spontaneous
  Country: US (occurrence: US)
  Receive Date: 20250408
  Receipt Date: 20250801
  Transmission Date: 20251020
  Serious: No
  Sender: MERCK SHARP & DOHME LLC
  Company Number: US-009507513-2271918

PATIENT
  Sex: Male
  Weight: 68.946 kg

DRUGS (28)
  1. WINREVAIR [Suspect]
     Active Substance: SOTATERCEPT-CSRK
     Indication: Pulmonary arterial hypertension
  2. WINREVAIR [Suspect]
     Active Substance: SOTATERCEPT-CSRK
  3. WINREVAIR [Suspect]
     Active Substance: SOTATERCEPT-CSRK
  4. WINREVAIR [Suspect]
     Active Substance: SOTATERCEPT-CSRK
  5. TYVASO [Suspect]
     Active Substance: TREPROSTINIL
     Indication: Pulmonary arterial hypertension
     Dosage: 72 ?G, QID (INHALATION GAS, STRENGTH: 0.6 MG/ML)
     Route: 055
     Dates: start: 20241008
  6. PERCOCET [Concomitant]
     Active Substance: ACETAMINOPHEN\OXYCODONE HYDROCHLORIDE
  7. FOLIC ACID [Concomitant]
     Active Substance: FOLIC ACID
  8. TAMSULOSIN HYDROCHLORIDE [Concomitant]
     Active Substance: TAMSULOSIN HYDROCHLORIDE
  9. JARDIANCE [Concomitant]
     Active Substance: EMPAGLIFLOZIN
  10. DUTASTERIDE [Concomitant]
     Active Substance: DUTASTERIDE
  11. BUTALBITAL, ASPIRIN, AND CAFFEINE [Concomitant]
     Active Substance: ASPIRIN\BUTALBITAL\CAFFEINE
  12. CLONAZEPAM [Concomitant]
     Active Substance: CLONAZEPAM
  13. ALBUTEROL SULFATE [Concomitant]
     Active Substance: ALBUTEROL SULFATE
  14. TRELEGY ELLIPTA [Concomitant]
     Active Substance: FLUTICASONE FUROATE\UMECLIDINIUM BROMIDE\VILANTEROL TRIFENATATE
  15. NEXIUM [Concomitant]
     Active Substance: ESOMEPRAZOLE MAGNESIUM
  16. NEBIVOLOL [Concomitant]
     Active Substance: NEBIVOLOL
  17. SILDENAFIL CITRATE [Concomitant]
     Active Substance: SILDENAFIL CITRATE
  18. ZOLPIDEM TARTRATE [Concomitant]
     Active Substance: ZOLPIDEM TARTRATE
  19. PREDNISONE [Concomitant]
     Active Substance: PREDNISONE
  20. ASPIRIN [Concomitant]
     Active Substance: ASPIRIN
  21. MONTELUKAST SODIUM [Concomitant]
     Active Substance: MONTELUKAST SODIUM
  22. DIAZEPAM [Concomitant]
     Active Substance: DIAZEPAM
  23. PRASUGREL HYDROCHLORIDE [Concomitant]
     Active Substance: PRASUGREL HYDROCHLORIDE
  24. BUTALBITAL, ACETAMINOPHEN, AND CAFFEINE [Concomitant]
     Active Substance: ACETAMINOPHEN\BUTALBITAL\CAFFEINE
  25. QUININE SULFATE [Concomitant]
     Active Substance: QUININE SULFATE
  26. ENTRESTO [Concomitant]
     Active Substance: SACUBITRIL\VALSARTAN
  27. CRESTOR [Concomitant]
     Active Substance: ROSUVASTATIN CALCIUM
  28. FUROSEMIDE [Concomitant]
     Active Substance: FUROSEMIDE

REACTIONS (2)
  - Drug ineffective [Unknown]
  - Injection site bruising [Recovered/Resolved]
